FAERS Safety Report 7631666-0 (Version None)
Quarter: 2011Q3

REPORT INFORMATION
  Report Type: 
  Country: None (occurrence: None)
  Receive Date: 20110725
  Receipt Date: 20110210
  Transmission Date: 20111222
  Serious: Yes (Other)
  Sender: FDA-Public Use
  Company Number: US-BRISTOL-MYERS SQUIBB COMPANY-15545379

PATIENT
  Age: 82 Year
  Sex: Female

DRUGS (2)
  1. COUMADIN [Suspect]
     Indication: ATRIAL FIBRILLATION
     Dates: start: 20101101
  2. MULTAQ [Suspect]
     Indication: ATRIAL FIBRILLATION
     Dosage: TABLET
     Route: 048
     Dates: start: 20101101

REACTIONS (1)
  - HEPATIC ENZYME INCREASED [None]
